FAERS Safety Report 4523645-7 (Version None)
Quarter: 2004Q4

REPORT INFORMATION
  Report Type: 
  Country: None (occurrence: None)
  Receive Date: 20041119
  Receipt Date: 20041011
  Transmission Date: 20050328
  Serious: No
  Sender: FDA-Public Use
  Company Number: 209584

PATIENT
  Sex: Male

DRUGS (2)
  1. RAPTIVA [Suspect]
     Indication: PSORIASIS
     Dosage: 1/WEEK, SUBCUTANEOUS
     Route: 058
     Dates: start: 20040701
  2. FLU VACCINE (INFLUENZA VIRUS VACCINE) [Concomitant]

REACTIONS (3)
  - CHILLS [None]
  - FEELING ABNORMAL [None]
  - HEADACHE [None]
